FAERS Safety Report 14011825 (Version 3)
Quarter: 2017Q4

REPORT INFORMATION
  Report Type: Report from Study
  Country: DE (occurrence: DE)
  Receive Date: 20170926
  Receipt Date: 20171013
  Transmission Date: 20180321
  Serious: Yes (Death, Hospitalization, Other)
  Sender: FDA-Public Use
  Company Number: DE-BRISTOL-MYERS SQUIBB COMPANY-BMS-2017-084651

PATIENT
  Age: 54 Year
  Sex: Male
  Weight: 123 kg

DRUGS (2)
  1. NIVOLUMAB [Suspect]
     Active Substance: NIVOLUMAB
     Indication: RENAL CELL CARCINOMA
     Dosage: 240 MG, UNK
     Route: 042
     Dates: start: 20170208
  2. IPILIMUMAB [Suspect]
     Active Substance: IPILIMUMAB
     Indication: RENAL CELL CARCINOMA
     Dosage: 123 MG, UNK
     Route: 042
     Dates: start: 20170613

REACTIONS (3)
  - Respiratory failure [Fatal]
  - Pleural effusion [Recovered/Resolved with Sequelae]
  - Neoplasm progression [Fatal]

NARRATIVE: CASE EVENT DATE: 20170917
